FAERS Safety Report 5320882-9 (Version None)
Quarter: 2007Q2

REPORT INFORMATION
  Report Type: 
  Country: None (occurrence: None)
  Receive Date: 20070504
  Receipt Date: 20070426
  Transmission Date: 20071010
  Serious: Yes (Life-Threatening, Hospitalization, Other)
  Sender: FDA-Public Use
  Company Number: 2007SP008000

PATIENT
  Sex: Female

DRUGS (1)
  1. DIPROSPAN (BETAMETHASONE SODIUM PHOSPHATE/DIPROPIONATE) (BETHAMESONE S [Suspect]
     Indication: DRUG USE FOR UNKNOWN INDICATION

REACTIONS (2)
  - ANAPHYLACTIC SHOCK [None]
  - HYPOKALAEMIA [None]
